FAERS Safety Report 6275923-1 (Version None)
Quarter: 2009Q3

REPORT INFORMATION
  Report Type: 
  Country: None (occurrence: None)
  Receive Date: 20090720
  Receipt Date: 20090707
  Transmission Date: 20100115
  Serious: Yes (Hospitalization)
  Sender: FDA-Public Use
  Company Number: 8048840

PATIENT
  Sex: Female

DRUGS (1)
  1. XYZAL [Suspect]
     Dosage: PO
     Route: 048

REACTIONS (1)
  - DYSKINESIA [None]
